FAERS Safety Report 7576987-5 (Version None)
Quarter: 2011Q2

REPORT INFORMATION
  Report Type: 
  Country: None (occurrence: None)
  Receive Date: 20110628
  Receipt Date: 20110613
  Transmission Date: 20111010
  Serious: Yes (Other)
  Sender: FDA-Public Use
  Company Number: US-BAYER-201030306NA

PATIENT
  Age: 15 Year
  Sex: Female
  Weight: 82.993 kg

DRUGS (6)
  1. DROSPIRENONE AND ETHINYL ESTRADIOL [Suspect]
     Dosage: UNK
     Dates: start: 20060603, end: 20080527
  2. YASMIN [Suspect]
     Indication: POLYCYSTIC OVARIES
     Dosage: UNK
     Route: 048
     Dates: start: 20060601, end: 20070101
  3. KEFLEX [Concomitant]
  4. YASMIN [Suspect]
     Dosage: UNK
     Dates: start: 20060603, end: 20080527
  5. DROSPIRENONE AND ETHINYL ESTRADIOL [Suspect]
     Indication: POLYCYSTIC OVARIES
     Dosage: UNK UNK, UNK
     Route: 048
     Dates: start: 20070101, end: 20090101
  6. GLUCOPHAGE [Concomitant]

REACTIONS (3)
  - GALLBLADDER INJURY [None]
  - CHOLECYSTITIS [None]
  - CHOLELITHIASIS [None]
